FAERS Safety Report 18611340 (Version 1)
Quarter: 2020Q4

REPORT INFORMATION
  Report Type: Spontaneous
  Country: US (occurrence: US)
  Receive Date: 20201214
  Receipt Date: 20201214
  Transmission Date: 20210114
  Serious: No
  Sender: FDA-Public Use
  Company Number: None

PATIENT
  Sex: Female

DRUGS (1)
  1. PREDNISONE 20 MG [Suspect]
     Active Substance: PREDNISONE

REACTIONS (1)
  - Gastrointestinal haemorrhage [None]
